FAERS Safety Report 18752468 (Version 4)
Quarter: 2021Q1

REPORT INFORMATION
  Report Type: Report from Study
  Country: FR (occurrence: FR)
  Receive Date: 20210118
  Receipt Date: 20210310
  Transmission Date: 20210419
  Serious: Yes (Hospitalization)
  Sender: FDA-Public Use
  Company Number: FR-ROCHE-2748267

PATIENT
  Age: 59 Year
  Sex: Female
  Weight: 56 kg

DRUGS (4)
  1. PANTOPRAZOLE [Concomitant]
     Active Substance: PANTOPRAZOLE
     Indication: HYPERCHLORHYDRIA
     Route: 048
     Dates: start: 202101, end: 202102
  2. MTIG 7192A [Suspect]
     Active Substance: TIRAGOLUMAB
     Indication: CERVIX CARCINOMA
     Dosage: START DATE OF MOST RECENT DOSE 600 MG OF STUDY DRUG PRIOR TO AE/SAE WAS 29/DEC/2020.?DOSE LAST STUDY
     Route: 042
     Dates: start: 20201117
  3. ATEZOLIZUMAB. [Suspect]
     Active Substance: ATEZOLIZUMAB
     Indication: CERVIX CARCINOMA
     Dosage: START DATE OF MOST RECENT DOSE 1200 MG OF STUDY DRUG PRIOR TO AE/SAE 29/DEC/2020?DOSE LAST STUDY DRU
     Route: 041
     Dates: start: 20201117
  4. TAHOR [Concomitant]
     Active Substance: ATORVASTATIN CALCIUM
     Route: 048
     Dates: start: 202101

REACTIONS (1)
  - Cerebrovascular accident [Recovered/Resolved with Sequelae]

NARRATIVE: CASE EVENT DATE: 20210110
